FAERS Safety Report 14570443 (Version 1)
Quarter: 2018Q1

REPORT INFORMATION
  Report Type: Spontaneous
  Country: US (occurrence: US)
  Receive Date: 20180226
  Receipt Date: 20180226
  Transmission Date: 20180509
  Serious: Yes (Other)
  Sender: FDA-Public Use
  Company Number: US-ABBVIE-18K-163-2267151-00

PATIENT
  Sex: Female
  Weight: 70.37 kg

DRUGS (2)
  1. HUMIRA [Suspect]
     Active Substance: ADALIMUMAB
     Route: 058
     Dates: start: 201107
  2. HUMIRA [Suspect]
     Active Substance: ADALIMUMAB
     Indication: PSORIATIC ARTHROPATHY
     Route: 058
     Dates: start: 2008, end: 201007

REACTIONS (7)
  - Uterine haemorrhage [Recovered/Resolved]
  - Face presentation [Unknown]
  - Uterine haematoma [Recovered/Resolved]
  - Uterine obstruction [Recovered/Resolved]
  - Vomiting in pregnancy [Recovered/Resolved]
  - Normal newborn [Not Recovered/Not Resolved]
  - Exposure during pregnancy [Unknown]

NARRATIVE: CASE EVENT DATE: 2010
